FAERS Safety Report 20800762 (Version 1)
Quarter: 2022Q2

REPORT INFORMATION
  Report Type: Spontaneous
  Country: CA (occurrence: CA)
  Receive Date: 20220509
  Receipt Date: 20220509
  Transmission Date: 20220720
  Serious: Yes (Other)
  Sender: FDA-Public Use
  Company Number: CA-BAYER-2022A063001

PATIENT
  Sex: Male

DRUGS (1)
  1. EYLEA [Suspect]
     Active Substance: AFLIBERCEPT
     Indication: Product used for unknown indication
     Dosage: SOLUTION FOR INJECTION, 40MG/ML

REACTIONS (4)
  - Vitreous loss [Unknown]
  - Intra-ocular injection complication [Unknown]
  - Vitreous loss [Unknown]
  - Intra-ocular injection complication [Unknown]

NARRATIVE: CASE EVENT DATE: 20220410
